FAERS Safety Report 9511095 (Version 1)
Quarter: 2013Q3

REPORT INFORMATION
  Report Type: Spontaneous
  Country: CA (occurrence: CA)
  Receive Date: 20130910
  Receipt Date: 20130910
  Transmission Date: 20140515
  Serious: Yes (Hospitalization)
  Sender: FDA-Public Use
  Company Number: CA-ROCHE-1271663

PATIENT
  Age: 42 Year
  Sex: Female
  Weight: 86.26 kg

DRUGS (5)
  1. XELODA [Suspect]
     Indication: PRODUCT USED FOR UNKNOWN INDICATION
     Dosage: 1 DOSAGE FORM, THERAPY DURATION: 7 DAYS
     Route: 048
  2. CLONAZEPAM [Concomitant]
     Route: 065
  3. DILAUDID [Concomitant]
  4. METOCLOPRAMIDE [Concomitant]
  5. ONDANSETRON [Concomitant]

REACTIONS (4)
  - Acute coronary syndrome [Recovered/Resolved]
  - Chest discomfort [Recovered/Resolved]
  - Electrocardiogram abnormal [Recovered/Resolved]
  - Troponin increased [Recovered/Resolved]
